FAERS Safety Report 7342675-3 (Version None)
Quarter: 2011Q1

REPORT INFORMATION
  Report Type: 
  Country: None (occurrence: None)
  Receive Date: 20110310
  Receipt Date: 20110307
  Transmission Date: 20110831
  Serious: Yes (Other)
  Sender: FDA-Public Use
  Company Number: US-PFIZER INC-2011050159

PATIENT
  Sex: Female
  Weight: 113 kg

DRUGS (9)
  1. CHANTIX [Suspect]
     Dosage: 1 MG, 2X/DAY
     Route: 048
     Dates: start: 20110201, end: 20110225
  2. PREVACID [Concomitant]
     Dosage: UNK
  3. FLUOXETINE [Concomitant]
     Dosage: UNK
  4. CHANTIX [Suspect]
     Indication: SMOKING CESSATION THERAPY
     Dosage: 0.5 MG, 1X/DAY
     Dates: start: 20110217, end: 20110201
  5. HYDROCHLOROTHIAZIDE [Concomitant]
     Dosage: UNK
  6. ATGAM [Concomitant]
     Dosage: UNK
  7. XANAX [Concomitant]
     Dosage: UNK
  8. VITAMIN D [Concomitant]
     Dosage: UNK
  9. PREDNISONE [Concomitant]
     Dosage: UNK

REACTIONS (3)
  - BLOOD GLUCOSE DECREASED [None]
  - DYSSTASIA [None]
  - TREMOR [None]
